FAERS Safety Report 20931193 (Version 1)
Quarter: 2022Q2

REPORT INFORMATION
  Report Type: Spontaneous
  Country: US (occurrence: US)
  Receive Date: 20220608
  Receipt Date: 20220608
  Transmission Date: 20220721
  Serious: Yes (Life-Threatening, Hospitalization)
  Sender: FDA-Public Use
  Company Number: CLT-US-2022-0012-262844

PATIENT
  Age: 18 Year
  Sex: Male

DRUGS (4)
  1. MEMANTINE [Suspect]
     Active Substance: MEMANTINE
     Indication: Medulloblastoma
  2. DEXAMETHASONE [Concomitant]
     Active Substance: DEXAMETHASONE
     Indication: Headache
  3. VALPROATE [Concomitant]
     Active Substance: VALPROIC ACID
     Indication: Headache
  4. MORPHINE [Concomitant]
     Active Substance: MORPHINE
     Indication: Headache

REACTIONS (2)
  - Mental status changes [Recovered/Resolved]
  - Off label use [Unknown]
